FAERS Safety Report 9706800 (Version 1)
Quarter: 2013Q4

REPORT INFORMATION
  Report Type: Spontaneous
  Country: IT (occurrence: IT)
  Receive Date: 20131125
  Receipt Date: 20131125
  Transmission Date: 20140711
  Serious: Yes (Hospitalization)
  Sender: FDA-Public Use
  Company Number: PHHY2013IT133598

PATIENT
  Age: 72 Year
  Sex: Female

DRUGS (3)
  1. ZOMETA [Suspect]
     Indication: PROSTATE CANCER
     Dosage: 4 MG, QMO (MONTHLY)
     Dates: start: 20110801, end: 20130808
  2. DECAPEPTYL//TRIPTORELIN ACETATE [Concomitant]
     Route: 030
  3. ESTRACYT//ESTRAMUSTINE PHOSPHATE [Concomitant]
     Route: 048

REACTIONS (1)
  - Osteonecrosis of jaw [Recovered/Resolved]
